FAERS Safety Report 9325250 (Version 1)
Quarter: 2013Q2

REPORT INFORMATION
  Report Type: Report from Study
  Country: CA (occurrence: CA)
  Receive Date: 20130604
  Receipt Date: 20130604
  Transmission Date: 20140414
  Serious: Yes (Other)
  Sender: FDA-Public Use
  Company Number: CA-ROCHE-1229365

PATIENT
  Age: 71 Year
  Sex: Male

DRUGS (9)
  1. ZELBORAF [Suspect]
     Indication: METASTATIC MALIGNANT MELANOMA
     Route: 048
     Dates: start: 201301, end: 20130513
  2. ZELBORAF [Suspect]
     Route: 048
     Dates: end: 20130410
  3. HYDREA [Concomitant]
     Route: 065
  4. DILAUDID [Concomitant]
     Indication: PAIN
     Route: 065
  5. APO-RAMIPRIL [Concomitant]
     Dosage: 3 PER MORNING
     Route: 065
  6. LYRICA [Concomitant]
  7. BABY ASPIRIN [Concomitant]
  8. APO-ATORVASTATIN [Concomitant]
     Dosage: AT BED TIME
     Route: 065
  9. AMLODIPINE [Concomitant]
     Dosage: IN THE MORNING
     Route: 065

REACTIONS (3)
  - Disease progression [Not Recovered/Not Resolved]
  - Drug-induced liver injury [Unknown]
  - Neoplasm recurrence [Not Recovered/Not Resolved]
